FAERS Safety Report 4919505-X (Version None)
Quarter: 2006Q1

REPORT INFORMATION
  Report Type: 
  Country: None (occurrence: None)
  Receive Date: 20060222
  Receipt Date: 20050414
  Transmission Date: 20060701
  Serious: Yes (Hospitalization)
  Sender: FDA-Public Use
  Company Number: US-MERCK-0504USA02521

PATIENT
  Age: 52 Year
  Sex: Female
  Weight: 73 kg

DRUGS (9)
  1. VIOXX [Suspect]
     Indication: HEADACHE
     Route: 048
     Dates: start: 20020601, end: 20030825
  2. ALBUTEROL [Concomitant]
     Route: 065
  3. IPRATROPIUM BROMIDE [Concomitant]
     Route: 065
  4. XOPENEX [Concomitant]
     Route: 065
  5. SEREVENT [Concomitant]
     Route: 065
  6. DELSYM [Concomitant]
     Route: 065
  7. ZYBAN [Concomitant]
     Route: 065
  8. ADVAIR DISKUS 100/50 [Concomitant]
     Route: 065
  9. ALPRAZOLAM [Concomitant]
     Route: 065

REACTIONS (3)
  - CARDIAC FAILURE CONGESTIVE [None]
  - CHEST PAIN [None]
  - DYSPNOEA [None]
